FAERS Safety Report 7801478-3 (Version None)
Quarter: 2011Q4

REPORT INFORMATION
  Report Type: 
  Country: None (occurrence: None)
  Receive Date: 20111005
  Receipt Date: 20110929
  Transmission Date: 20120403
  Serious: Yes (Other)
  Sender: FDA-Public Use
  Company Number: 1000024319

PATIENT
  Sex: Female

DRUGS (1)
  1. DALIRESP [Suspect]

REACTIONS (3)
  - MOOD ALTERED [None]
  - SUICIDAL IDEATION [None]
  - HOMICIDAL IDEATION [None]
